FAERS Safety Report 18221691 (Version 1)
Quarter: 2020Q3

REPORT INFORMATION
  Report Type: Spontaneous
  Country: US (occurrence: US)
  Receive Date: 20200902
  Receipt Date: 20200902
  Transmission Date: 20201103
  Serious: Yes (Hospitalization)
  Sender: FDA-Public Use
  Company Number: None

PATIENT
  Age: 68 Year
  Sex: Male
  Weight: 101 kg

DRUGS (2)
  1. DAUNORUBICIN 397.5MG [Suspect]
     Active Substance: DAUNORUBICIN HYDROCHLORIDE
     Dates: end: 20200717
  2. CYTARABINE 1540MG [Suspect]
     Active Substance: CYTARABINE
     Dates: end: 20200721

REACTIONS (3)
  - Cough [None]
  - Hypertension [None]
  - Febrile neutropenia [None]

NARRATIVE: CASE EVENT DATE: 20200726
